FAERS Safety Report 24267573 (Version 1)
Quarter: 2024Q3

REPORT INFORMATION
  Report Type: Spontaneous
  Country: US (occurrence: None)
  Receive Date: 20240829
  Receipt Date: 20240829
  Transmission Date: 20241016
  Serious: Yes (Other)
  Sender: Public
  Company Number: None

PATIENT
  Age: 65 Year
  Sex: Male
  Weight: 76 kg

DRUGS (2)
  1. ONIVYDE [Suspect]
     Active Substance: IRINOTECAN HYDROCHLORIDE
     Indication: Pancreatic carcinoma metastatic
     Route: 041
  2. ATROPINE [Suspect]
     Active Substance: ATROPINE

REACTIONS (7)
  - Infusion related reaction [None]
  - Dizziness [None]
  - Musculoskeletal stiffness [None]
  - Back pain [None]
  - Blood pressure increased [None]
  - Mydriasis [None]
  - Eye disorder [None]

NARRATIVE: CASE EVENT DATE: 20240828
